FAERS Safety Report 6232713-3 (Version None)
Quarter: 2009Q2

REPORT INFORMATION
  Report Type: 
  Country: None (occurrence: None)
  Receive Date: 20090617
  Receipt Date: 20090605
  Transmission Date: 20091009
  Serious: Yes (Hospitalization, Other)
  Sender: FDA-Public Use
  Company Number: US-AMGEN-TCS340745

PATIENT
  Sex: Female
  Weight: 69 kg

DRUGS (8)
  1. ENBREL [Suspect]
     Indication: PSORIATIC ARTHROPATHY
     Route: 058
     Dates: start: 20020501
  2. TAXOL [Suspect]
  3. ANASTROZOLE [Concomitant]
  4. GABAPENTIN [Concomitant]
  5. ELAVIL [Concomitant]
  6. IRON [Concomitant]
  7. ESOMEPRAZOLE MAGNESIUM [Concomitant]
  8. TRAMADOL HCL [Concomitant]

REACTIONS (3)
  - AXONAL NEUROPATHY [None]
  - BREAST CANCER [None]
  - THERAPEUTIC RESPONSE DECREASED [None]
